FAERS Safety Report 6406513-5 (Version None)
Quarter: 2009Q4

REPORT INFORMATION
  Report Type: 
  Country: None (occurrence: None)
  Receive Date: 20091019
  Receipt Date: 20091006
  Transmission Date: 20100525
  Serious: Yes (Other)
  Sender: FDA-Public Use
  Company Number: PHEH2009US13155

PATIENT
  Sex: Female
  Weight: 57.596 kg

DRUGS (9)
  1. RECLAST [Suspect]
     Indication: OSTEOPOROSIS
     Dosage: 5MG/100 ML OVER 15 MINUTES
     Route: 042
     Dates: start: 20090501, end: 20090501
  2. ZANTAC [Concomitant]
     Dosage: UNK, UNK
     Route: 065
  3. SYMBICORT [Concomitant]
     Dosage: UNK, UNK
     Route: 065
  4. LISINOPRIL [Concomitant]
     Dosage: UNK, UNK
     Route: 065
  5. PREMARIN [Concomitant]
     Dosage: UNK, UNK
     Route: 065
  6. ALBUTEROL [Concomitant]
     Dosage: UNK, UNK
     Route: 065
  7. LORTAB [Concomitant]
     Dosage: UNK, UNK
     Route: 065
  8. LORAZEPAM [Concomitant]
     Dosage: UNK, UNK
     Route: 065
  9. FOSAMAX [Concomitant]
     Dosage: UNK, UNK
     Route: 048
     Dates: start: 20060101

REACTIONS (2)
  - OSTEONECROSIS [None]
  - STOMATITIS [None]
